FAERS Safety Report 7474819-7 (Version None)
Quarter: 2011Q2

REPORT INFORMATION
  Report Type: 
  Country: None (occurrence: None)
  Receive Date: 20110512
  Receipt Date: 20110408
  Transmission Date: 20111010
  Serious: Yes (Other)
  Sender: FDA-Public Use
  Company Number: US-BAYER-201011123NA

PATIENT
  Age: 48 Year
  Sex: Female
  Weight: 58.957 kg

DRUGS (6)
  1. VITAMIN C [Concomitant]
  2. LUPRON [Concomitant]
  3. HERBAL TEAS [Concomitant]
  4. YAZ [Suspect]
     Indication: UTERINE LEIOMYOMA
  5. DEPO-PROVERA [Concomitant]
  6. YASMIN [Suspect]
     Indication: PRODUCT USED FOR UNKNOWN INDICATION
     Route: 048

REACTIONS (3)
  - EMOTIONAL DISTRESS [None]
  - RETINAL VEIN OCCLUSION [None]
  - MACULAR OEDEMA [None]
